FAERS Safety Report 9143782 (Version 1)
Quarter: 2013Q1

REPORT INFORMATION
  Report Type: Spontaneous
  Country: GB (occurrence: GB)
  Receive Date: 20130306
  Receipt Date: 20130306
  Transmission Date: 20140127
  Serious: Yes (Other)
  Sender: FDA-Public Use
  Company Number: GB-BRISTOL-MYERS SQUIBB COMPANY-17418856

PATIENT
  Age: 18 Year
  Sex: Male
  Weight: 68 kg

DRUGS (8)
  1. ARIPIPRAZOLE [Suspect]
     Indication: SCHIZOAFFECTIVE DISORDER
     Route: 048
     Dates: start: 20130208
  2. ACETYLSALICYLIC ACID [Concomitant]
  3. CO-CODAMOL [Concomitant]
  4. DICLOFENAC POTASSIUM [Concomitant]
  5. IBUPROFEN [Concomitant]
  6. MORPHINE SULPHATE [Concomitant]
  7. PARACETAMOL [Concomitant]
  8. QUETIAPINE [Concomitant]

REACTIONS (3)
  - Akathisia [Not Recovered/Not Resolved]
  - Bone pain [Unknown]
  - Burning sensation [Unknown]
